FAERS Safety Report 4330718-0 (Version None)
Quarter: 2004Q1

REPORT INFORMATION
  Report Type: 
  Country: None (occurrence: None)
  Receive Date: 20040329
  Receipt Date: 20040318
  Transmission Date: 20041129
  Serious: Yes (Hospitalization)
  Sender: FDA-Public Use
  Company Number: CIP04000570

PATIENT
  Sex: Female

DRUGS (1)
  1. ACTONEL [Suspect]
     Indication: OSTEOPOROSIS
     Dosage: 35 MG ONE DOSE, ORAL
     Route: 048
     Dates: start: 20040201, end: 20040201

REACTIONS (3)
  - ABDOMINAL DISCOMFORT [None]
  - APPENDICITIS [None]
  - BACK PAIN [None]
